FAERS Safety Report 7341340-6 (Version None)
Quarter: 2011Q1

REPORT INFORMATION
  Report Type: 
  Country: None (occurrence: None)
  Receive Date: 20110301
  Receipt Date: 20110216
  Transmission Date: 20110831
  Serious: Yes (Other)
  Sender: FDA-Public Use
  Company Number: DKLU1062721

PATIENT
  Age: 2 Year
  Sex: Female
  Weight: 6.58 kg

DRUGS (3)
  1. TOPAMAX [Concomitant]
  2. DEPAKOTE [Concomitant]
  3. SABRIL [Suspect]
     Indication: INFANTILE SPASMS
     Dosage: 500 MG MILLIGRAM (S), 2 IN 1 D, ORAL
     Route: 048
     Dates: start: 20100201, end: 20110101

REACTIONS (4)
  - UNDERWEIGHT [None]
  - POSITRON EMISSION TOMOGRAM ABNORMAL [None]
  - TREMOR [None]
  - AURA [None]
